FAERS Safety Report 7919425-2 (Version None)
Quarter: 2011Q4

REPORT INFORMATION
  Report Type: 
  Country: None (occurrence: None)
  Receive Date: 20111116
  Receipt Date: 20111116
  Transmission Date: 20120403
  Serious: Yes (Hospitalization)
  Sender: FDA-Public Use
  Company Number: None

PATIENT
  Sex: Male
  Weight: 77.2 kg

DRUGS (2)
  1. CARBOPLATIN [Suspect]
     Dosage: 600 MG
     Dates: end: 20111019
  2. TAXOL [Suspect]
     Dosage: 131.2 MG
     Dates: end: 20111019

REACTIONS (12)
  - VOMITING [None]
  - NEUTROPENIA [None]
  - ASPARTATE AMINOTRANSFERASE ABNORMAL [None]
  - FATIGUE [None]
  - ABDOMINAL PAIN [None]
  - LEUKOPENIA [None]
  - BLOOD ALKALINE PHOSPHATASE ABNORMAL [None]
  - CONFUSIONAL STATE [None]
  - JAUNDICE CHOLESTATIC [None]
  - HYPERBILIRUBINAEMIA [None]
  - ALANINE AMINOTRANSFERASE ABNORMAL [None]
  - NAUSEA [None]
